FAERS Safety Report 9691270 (Version 1)
Quarter: 2013Q4

REPORT INFORMATION
  Report Type: Spontaneous
  Country: US (occurrence: US)
  Receive Date: 20131115
  Receipt Date: 20131115
  Transmission Date: 20140711
  Serious: Yes (Death)
  Sender: FDA-Public Use
  Company Number: US-CELGENEUS-163-21880-13112564

PATIENT
  Age: 75 Year
  Sex: Male
  Weight: 59.02 kg

DRUGS (3)
  1. REVLIMID [Suspect]
     Indication: LYMPHOMA
     Dosage: 20 MILLIGRAM
     Route: 048
     Dates: start: 20130926, end: 2013
  2. LYRICA [Concomitant]
     Indication: PRODUCT USED FOR UNKNOWN INDICATION
     Route: 048
  3. PANTOPRAZOLE SODIUM [Concomitant]
     Indication: PRODUCT USED FOR UNKNOWN INDICATION
     Route: 048

REACTIONS (1)
  - Death [Fatal]
